FAERS Safety Report 5730290-4 (Version None)
Quarter: 2008Q2

REPORT INFORMATION
  Report Type: 
  Country: None (occurrence: None)
  Receive Date: 20080505
  Receipt Date: 20080505
  Transmission Date: 20081010
  Serious: Yes (Life-Threatening)
  Sender: FDA-Public Use
  Company Number: None

PATIENT
  Age: 40 Year
  Sex: Male
  Weight: 89.8122 kg

DRUGS (1)
  1. DURAGESIC-100 [Suspect]
     Indication: PAIN
     Dosage: ONE PACH 72 HOURS TRANSDERMAL
     Route: 062
     Dates: start: 20020121, end: 20080504

REACTIONS (4)
  - CONFUSIONAL STATE [None]
  - DEVICE LEAKAGE [None]
  - DISORIENTATION [None]
  - VERTIGO [None]
